FAERS Safety Report 16174752 (Version 3)
Quarter: 2019Q2

REPORT INFORMATION
  Report Type: Report from Study
  Country: US (occurrence: US)
  Receive Date: 20190409
  Receipt Date: 20190510
  Transmission Date: 20190711
  Serious: Yes (Hospitalization)
  Sender: FDA-Public Use
  Company Number: US-PFIZER INC-2019147791

PATIENT
  Age: 28 Year
  Sex: Male
  Weight: 79 kg

DRUGS (4)
  1. INOTUZUMAB OZOGAMICIN [Suspect]
     Active Substance: INOTUZUMAB OZOGAMICIN
     Indication: B PRECURSOR TYPE ACUTE LEUKAEMIA
     Dosage: 0.8 MG/M2, DAY 1, 8, 15
     Route: 042
     Dates: start: 20190327, end: 20190327
  2. CYCLOPHOSPHAMIDE. [Suspect]
     Active Substance: CYCLOPHOSPHAMIDE
     Indication: B PRECURSOR TYPE ACUTE LEUKAEMIA
     Dosage: 750 MG/M2, DAY 1
     Route: 042
     Dates: start: 20190327, end: 20190327
  3. VINCRISTINE SULFATE. [Suspect]
     Active Substance: VINCRISTINE SULFATE
     Indication: B PRECURSOR TYPE ACUTE LEUKAEMIA
     Dosage: 2 MG/M2, DAY 1
     Route: 042
     Dates: start: 20190327, end: 20190327
  4. PREDNISONE. [Suspect]
     Active Substance: PREDNISONE
     Indication: B PRECURSOR TYPE ACUTE LEUKAEMIA
     Dosage: 100 MG, DAY 1-5
     Route: 048
     Dates: start: 20190327, end: 20190331

REACTIONS (1)
  - Septic shock [Not Recovered/Not Resolved]

NARRATIVE: CASE EVENT DATE: 20190402
